FAERS Safety Report 9397964 (Version 1)
Quarter: 2013Q3

REPORT INFORMATION
  Report Type: Spontaneous
  Country: AU (occurrence: AU)
  Receive Date: 20130712
  Receipt Date: 20130712
  Transmission Date: 20140515
  Serious: Yes (Other)
  Sender: FDA-Public Use
  Company Number: PHHY2013AU072908

PATIENT
  Age: 68 Year
  Sex: Female

DRUGS (8)
  1. ZOLEDRONATE [Suspect]
     Dosage: UNK UKN, UNK
  2. RANITIDINE [Suspect]
     Dosage: UNK UKN, UNK
  3. ENOXAPARIN [Suspect]
     Dosage: UNK UKN, UNK
  4. DOCUSATE SODIUM\SENNOSIDES [Suspect]
     Dosage: UNK UKN, UNK
  5. MOVICOL [Suspect]
     Dosage: UNK UKN, UNK
  6. FRUSEMIDE [Suspect]
     Dosage: UNK UKN, UNK
  7. STRONTIUM RANELATE [Suspect]
     Dosage: UNK UKN, UNK
  8. SERETIDE [Suspect]
     Dosage: UNK UKN, UNK

REACTIONS (4)
  - Liver function test abnormal [Unknown]
  - Chest pain [Unknown]
  - Chills [Unknown]
  - Pyrexia [Unknown]
